FAERS Safety Report 7058890-2 (Version None)
Quarter: 2010Q4

REPORT INFORMATION
  Report Type: 
  Country: None (occurrence: None)
  Receive Date: 20101022
  Receipt Date: 20101014
  Transmission Date: 20110411
  Serious: Yes (Hospitalization)
  Sender: FDA-Public Use
  Company Number: DE-AMGEN INC.-DEUCT2010000252

PATIENT

DRUGS (2)
  1. PANITUMUMAB [Suspect]
     Indication: COLORECTAL CANCER
     Dosage: 6 MG/KG, Q2WK
     Route: 042
     Dates: start: 20100809
  2. IRINOTECAN HCL [Suspect]
     Dosage: 150 MG/KG, Q2WK
     Route: 042
     Dates: start: 20100809

REACTIONS (1)
  - STOMATITIS [None]
